FAERS Safety Report 18412262 (Version 1)
Quarter: 2020Q4

REPORT INFORMATION
  Report Type: Spontaneous
  Country: US (occurrence: US)
  Receive Date: 20201021
  Receipt Date: 20201021
  Transmission Date: 20210114
  Serious: Yes (Other)
  Sender: FDA-Public Use
  Company Number: US-TEVA-2020-US-1840472

PATIENT
  Sex: Female

DRUGS (10)
  1. OXYFAST [Suspect]
     Active Substance: OXYCODONE
     Route: 065
  2. TRAMADOL. [Suspect]
     Active Substance: TRAMADOL
     Route: 065
  3. MORPHINE EXTENDED RELEASE TABLETS [Suspect]
     Active Substance: MORPHINE
     Route: 065
  4. HYDROMORPHONE ORAL SOLUTIONS [Suspect]
     Active Substance: HYDROMORPHONE HYDROCHLORIDE
     Route: 048
  5. MSIR [Suspect]
     Active Substance: MORPHINE SULFATE
     Route: 065
  6. HYSINGLA ER [Suspect]
     Active Substance: HYDROCODONE BITARTRATE
     Route: 065
  7. HYDROCODONE/ACETAMINOPHEN [Suspect]
     Active Substance: ACETAMINOPHEN\HYDROCODONE
     Route: 065
  8. OXYCODONE IMMEDIATE RELEASE TABLETS [Suspect]
     Active Substance: OXYCODONE HYDROCHLORIDE
     Route: 065
  9. DHC PLUS [Suspect]
     Active Substance: ACETAMINOPHEN\CAFFEINE\DIHYDROCODEINE BITARTRATE
     Route: 065
  10. PALLADONE [Suspect]
     Active Substance: HYDROMORPHONE HYDROCHLORIDE
     Route: 065

REACTIONS (8)
  - Dependence [Unknown]
  - Substance use disorder [Unknown]
  - Stress [Unknown]
  - Depression [Unknown]
  - Personal relationship issue [Unknown]
  - Anxiety [Unknown]
  - Loss of employment [Unknown]
  - Insomnia [Unknown]
